FAERS Safety Report 10654025 (Version 1)
Quarter: 2014Q4

REPORT INFORMATION
  Report Type: Spontaneous
  Country: US (occurrence: None)
  Receive Date: 20141215
  Receipt Date: 20141215
  Transmission Date: 20150529
  Serious: Yes (Other)
  Sender: FDA-Public Use
  Company Number: None

PATIENT
  Age: 32 Year
  Sex: Female

DRUGS (1)
  1. CAPECITABINE 500MG TEVA PHARMACEUTICALS [Suspect]
     Active Substance: CAPECITABINE
     Indication: NEOPLASM MALIGNANT
     Dosage: 2000MG QAM?1500MG QPM
     Route: 048
     Dates: start: 20140919

REACTIONS (5)
  - Brain oedema [None]
  - Feeling abnormal [None]
  - Pain [None]
  - Palmar-plantar erythrodysaesthesia syndrome [None]
  - Thinking abnormal [None]

NARRATIVE: CASE EVENT DATE: 201409
